FAERS Safety Report 8854747 (Version 1)
Quarter: 2012Q4

REPORT INFORMATION
  Report Type: 
  Country: US (occurrence: US)
  Receive Date: 20121023
  Receipt Date: 20121023
  Transmission Date: 20130627
  Serious: Yes (Hospitalization)
  Sender: FDA-Public Use
  Company Number: US-009507513-1210USA008755

PATIENT
  Age: 44 Year
  Sex: Male

DRUGS (3)
  1. ISENTRESS [Suspect]
     Indication: HIV INFECTION
     Dosage: 800 Every 12 hours
     Route: 048
     Dates: start: 201209, end: 20121003
  2. RIFAMPIN [Concomitant]
     Dosage: UNK
     Dates: start: 201209, end: 20121003
  3. TRUVADA [Concomitant]
     Dosage: UNK UNK, q12h
     Dates: start: 201209, end: 20121003

REACTIONS (1)
  - Drug-induced liver injury [Unknown]
